FAERS Safety Report 6619252-2 (Version None)
Quarter: 2010Q1

REPORT INFORMATION
  Report Type: 
  Country: None (occurrence: None)
  Receive Date: 20100308
  Receipt Date: 20100224
  Transmission Date: 20100710
  Serious: Yes (Hospitalization)
  Sender: FDA-Public Use
  Company Number: US-AMGEN-KDC395063

PATIENT
  Age: 58 Year
  Sex: Male
  Weight: 75.8 kg

DRUGS (16)
  1. PANITUMUMAB [Suspect]
     Indication: SQUAMOUS CELL CARCINOMA
  2. DOCETAXEL [Suspect]
     Route: 042
     Dates: start: 20100209
  3. CISPLATIN [Suspect]
     Route: 042
     Dates: start: 20100209
  4. 5-FU [Suspect]
     Route: 042
     Dates: start: 20100209
  5. ATIVAN [Concomitant]
  6. CIPROFLOXACIN [Concomitant]
  7. DECADRON [Concomitant]
  8. FISH OIL [Concomitant]
  9. LIDOCAINE HCL VISCOUS [Concomitant]
  10. MULTI-VITAMINS [Concomitant]
  11. ONDANSETRON [Concomitant]
  12. OXYMETAZOLINE HCL [Concomitant]
  13. OXYMETAZOLINE HCL [Concomitant]
  14. REGLAN [Concomitant]
  15. ROXICET [Concomitant]
  16. BENADRYL, LIDOCAINE VISCOUS, MAALOX [Concomitant]

REACTIONS (2)
  - FEBRILE NEUTROPENIA [None]
  - HYPONATRAEMIA [None]
